FAERS Safety Report 6431605-4 (Version None)
Quarter: 2009Q4

REPORT INFORMATION
  Report Type: 
  Country: None (occurrence: None)
  Receive Date: 20091106
  Receipt Date: 20091028
  Transmission Date: 20100525
  Serious: Yes (Hospitalization, Other)
  Sender: FDA-Public Use
  Company Number: GB-ELI_LILLY_AND_COMPANY-GB200910007393

PATIENT
  Age: 69 Year
  Sex: Female
  Weight: 72.1 kg

DRUGS (10)
  1. ZYPREXA [Suspect]
     Indication: PARANOIA
     Dosage: UNK, UNKNOWN
     Route: 048
     Dates: start: 20090930, end: 20091016
  2. DETRUSITOL XL [Concomitant]
  3. DIAZEPAM [Concomitant]
  4. FLUOXETINE [Concomitant]
  5. IRBESARTAN [Concomitant]
  6. LANSOPRAZOLE [Concomitant]
  7. LORAZEPAM [Concomitant]
  8. NULYTELY [Concomitant]
  9. PARACETAMOL [Concomitant]
  10. PROCYCLIDINE HYDROCHLORIDE [Concomitant]

REACTIONS (6)
  - DISORIENTATION [None]
  - EXTRAPYRAMIDAL DISORDER [None]
  - FALL [None]
  - MOBILITY DECREASED [None]
  - POSTURE ABNORMAL [None]
  - TACHYCARDIA [None]
